FAERS Safety Report 9360086 (Version 2)
Quarter: 2013Q3

REPORT INFORMATION
  Report Type: Spontaneous
  Country: FR (occurrence: FR)
  Receive Date: 20130621
  Receipt Date: 20130722
  Transmission Date: 20140515
  Serious: Yes (Other)
  Sender: FDA-Public Use
  Company Number: PHHY2013FR062997

PATIENT
  Age: 51 Year
  Sex: Female

DRUGS (5)
  1. TEGRETOL [Suspect]
     Indication: EPILEPSY
     Dosage: UNK UKN, UNK
     Route: 048
     Dates: start: 20130429, end: 20130523
  2. TAHOR [Concomitant]
  3. INORIAL [Concomitant]
  4. COVERSYL                                /BEL/ [Concomitant]
  5. ZOPICLONE [Concomitant]

REACTIONS (5)
  - Hypersensitivity vasculitis [Recovering/Resolving]
  - Purpura [Unknown]
  - Oedema peripheral [Unknown]
  - Lymphopenia [Unknown]
  - Arthralgia [Unknown]
